FAERS Safety Report 7227333-8 (Version None)
Quarter: 2011Q1

REPORT INFORMATION
  Report Type: 
  Country: None (occurrence: None)
  Receive Date: 20110111
  Receipt Date: 20110111
  Transmission Date: 20110831
  Serious: Yes (Hospitalization)
  Sender: FDA-Public Use
  Company Number: None

PATIENT
  Age: 23 Year
  Sex: Female
  Weight: 61.2356 kg

DRUGS (1)
  1. TRANSDERM SCOP [Suspect]
     Indication: VERTIGO
     Dosage: ONE PATCH BEHIND EAR EVERY 3 DAYS
     Dates: start: 20110103, end: 20110105

REACTIONS (10)
  - MUSCLE SPASMS [None]
  - DIPLOPIA [None]
  - FACE INJURY [None]
  - LOSS OF CONSCIOUSNESS [None]
  - PRURITUS GENERALISED [None]
  - VOMITING [None]
  - DYSPNOEA [None]
  - VISUAL ACUITY REDUCED [None]
  - ASTHENIA [None]
  - TREMOR [None]
